FAERS Safety Report 22013602 (Version 3)
Quarter: 2024Q1

REPORT INFORMATION
  Report Type: Report from Study
  Country: US (occurrence: US)
  Receive Date: 20230220
  Receipt Date: 20240105
  Transmission Date: 20240409
  Serious: Yes (Other)
  Sender: FDA-Public Use
  Company Number: US-SHIRE-US201729921

PATIENT
  Sex: Female

DRUGS (1)
  1. HUMAN IMMUNOGLOBULIN G [Suspect]
     Active Substance: HUMAN IMMUNOGLOBULIN G
     Indication: Immunodeficiency common variable
     Dosage: UNK
     Route: 058

REACTIONS (5)
  - Rheumatoid arthritis [Unknown]
  - Infusion site hypersensitivity [Unknown]
  - Infection [Recovered/Resolved]
  - Cervical radiculopathy [Unknown]
  - Infusion site bruising [Unknown]
